FAERS Safety Report 16531280 (Version 2)
Quarter: 2019Q3

REPORT INFORMATION
  Report Type: Report from Study
  Country: CA (occurrence: CA)
  Receive Date: 20190704
  Receipt Date: 20190906
  Transmission Date: 20191004
  Serious: Yes (Other)
  Sender: FDA-Public Use
  Company Number: PHHY2019CA151174

PATIENT
  Sex: Female

DRUGS (2)
  1. CANDESARTAN CILEXETIL. [Suspect]
     Active Substance: CANDESARTAN CILEXETIL
     Indication: MIGRAINE
     Dosage: UNK
     Route: 065
     Dates: start: 2017, end: 201906
  2. BISOPROLOL [Suspect]
     Active Substance: BISOPROLOL
     Indication: MIGRAINE
     Dosage: UNK
     Route: 065
     Dates: start: 2017, end: 201906

REACTIONS (4)
  - Product use in unapproved indication [Unknown]
  - Contraindicated product administered [Unknown]
  - Migraine [Unknown]
  - Renal impairment [Unknown]
